FAERS Safety Report 9899559 (Version 3)
Quarter: 2014Q2

REPORT INFORMATION
  Report Type: Spontaneous
  Country: US (occurrence: US)
  Receive Date: 20140214
  Receipt Date: 20140625
  Transmission Date: 20141212
  Serious: No
  Sender: FDA-Public Use
  Company Number: US-PFIZER INC-2014041519

PATIENT
  Age: 78 Year
  Sex: Female
  Weight: 68.03 kg

DRUGS (1)
  1. SUTENT [Suspect]
     Indication: NEOPLASM MALIGNANT
     Dosage: 50 MG, UNK
     Dates: start: 20131219

REACTIONS (2)
  - Platelet count decreased [Unknown]
  - Drug intolerance [Unknown]
